FAERS Safety Report 4347143-9 (Version None)
Quarter: 2004Q2

REPORT INFORMATION
  Report Type: 
  Country: None (occurrence: None)
  Receive Date: 20040422
  Receipt Date: 20040412
  Transmission Date: 20050107
  Serious: Yes (Other)
  Sender: FDA-Public Use
  Company Number: JP-JNJFOC-20040203498

PATIENT
  Age: 53 Year
  Sex: Female
  Weight: 50 kg

DRUGS (21)
  1. REMICADE [Suspect]
     Indication: RHEUMATOID ARTHRITIS
     Dosage: SEE IMAGE
     Route: 041
     Dates: start: 20031103, end: 20031103
  2. REMICADE [Suspect]
     Indication: RHEUMATOID ARTHRITIS
     Dosage: SEE IMAGE
     Route: 041
     Dates: start: 20031117, end: 20031117
  3. REMICADE [Suspect]
     Indication: RHEUMATOID ARTHRITIS
     Dosage: SEE IMAGE
     Route: 041
     Dates: start: 20031220, end: 20031222
  4. REMICADE [Suspect]
     Indication: RHEUMATOID ARTHRITIS
     Dosage: SEE IMAGE
     Route: 041
     Dates: start: 20040218, end: 20040218
  5. REMICADE [Suspect]
     Indication: RHEUMATOID ARTHRITIS
     Dosage: SEE IMAGE
     Route: 041
     Dates: start: 20040407, end: 20040407
  6. PREDNISOLONE [Suspect]
     Indication: DRUG USE FOR UNKNOWN INDICATION
  7. ALFACALCIDOL (ALFACALCIDOL) [Concomitant]
  8. DIBASIC CALCIUM PHOSPHATE (CALCIUM PHOSPHATE DIBASIC [Concomitant]
  9. DIMETICONE (DIMETICONE) [Concomitant]
  10. ECABET SODIUM (ECABET) [Concomitant]
  11. ENTERONON R (ENTERONON R) [Concomitant]
  12. FLURBIPROFEN [Concomitant]
  13. LANSOPRAZOLE [Concomitant]
  14. L-ASPARTATE POTASSIUM (POTASSIUM) [Concomitant]
  15. LOXOPROFEN SODIUM (LOXOPROFEN SODIUM) [Concomitant]
  16. MECOBALAMIN (MECOBALAMIN) [Concomitant]
  17. METHOTREXATE [Concomitant]
  18. PANTETHINE (PANTETHINE) [Concomitant]
  19. POLAPREZINC (POLAPREZINC) [Concomitant]
  20. SODIUM RISEDRONATE HYDRATE (RISEDRONATE SODIUM) [Concomitant]
  21. VANCOMYCIN HCL [Concomitant]

REACTIONS (3)
  - CLOSTRIDIUM COLITIS [None]
  - GASTROENTERITIS [None]
  - ILEUS [None]
